FAERS Safety Report 9501939 (Version 7)
Quarter: 2014Q1

REPORT INFORMATION
  Report Type: Report from Study
  Country: DE (occurrence: DE)
  Receive Date: 20130905
  Receipt Date: 20140324
  Transmission Date: 20141002
  Serious: Yes (Other)
  Sender: FDA-Public Use
  Company Number: DE-TEVA-430246USA

PATIENT
  Age: 78 Year
  Sex: Male

DRUGS (10)
  1. BENDAMUSTINE [Suspect]
     Indication: CHRONIC LYMPHOCYTIC LEUKAEMIA
     Dosage: EVERY 4 WEEKS
     Route: 042
     Dates: start: 20130603
  2. BENDAMUSTINE [Suspect]
     Dosage: EVERY 4 WEEKS,CYCLE 2
     Route: 042
  3. BENDAMUSTINE [Suspect]
     Dosage: EVERY 4 WEEKS, CYCLE 3,4
     Route: 042
  4. L-THYROXIN [Concomitant]
  5. BISOPROLOL [Concomitant]
  6. RITUXIMAB [Concomitant]
     Dosage: 690 MILLIGRAM DAILY;
     Dates: start: 20130603
  7. PARACETAMOL [Concomitant]
     Dosage: 1000 MILLIGRAM DAILY; ON DAY 1 OF BENDAMUSTINE TREATMENT CYCLE
     Dates: start: 20130603
  8. ONDANSETRON [Concomitant]
     Dosage: 8 MILLIGRAM DAILY; ON DAY 1 AND 2 OF BENDAMUSTINE TREATMENT
     Dates: start: 20130603
  9. CLEMASTIN [Concomitant]
     Dosage: 2 MILLIGRAM DAILY; ON DAY 1 OF BENDAMUSTINE TREATMENT
     Dates: start: 20130603
  10. RANITIDINE [Concomitant]
     Dosage: 1 AMPOULE ON DAY 1 OF BENDAMUSTINE TREATMENT
     Dates: start: 20130603

REACTIONS (6)
  - Pancytopenia [Recovered/Resolved]
  - Dyspnoea exertional [Recovered/Resolved]
  - Insomnia [Recovered/Resolved]
  - Asthenia [Recovered/Resolved]
  - Rash [Recovered/Resolved]
  - Oedema peripheral [Recovered/Resolved]
